FAERS Safety Report 13122394 (Version 7)
Quarter: 2018Q2

REPORT INFORMATION
  Report Type: Spontaneous
  Country: US (occurrence: US)
  Receive Date: 20170117
  Receipt Date: 20180530
  Transmission Date: 20180711
  Serious: Yes (Other)
  Sender: FDA-Public Use
  Company Number: US-ASTRAZENECA-2017SE03485

PATIENT
  Age: 85 Year
  Sex: Female

DRUGS (11)
  1. BRILINTA [Suspect]
     Active Substance: TICAGRELOR
     Indication: ATRIAL FIBRILLATION
     Dosage: 60.0MG UNKNOWN
     Route: 048
  2. XANAX [Concomitant]
     Active Substance: ALPRAZOLAM
     Indication: ATRIAL FIBRILLATION
  3. CLONIDINE. [Concomitant]
     Active Substance: CLONIDINE
     Indication: BLOOD PRESSURE ABNORMAL
     Dosage: EITHER PILL OR PATCH .2 MG.
  4. CISPLATIN. [Concomitant]
     Active Substance: CISPLATIN
  5. CRESTOR [Suspect]
     Active Substance: ROSUVASTATIN CALCIUM
     Indication: BLOOD CHOLESTEROL INCREASED
     Route: 048
     Dates: start: 2015
  6. ZOCOR [Concomitant]
     Active Substance: SIMVASTATIN
  7. LEVOTHYROXINE. [Concomitant]
     Active Substance: LEVOTHYROXINE
     Indication: HYPOTHYROIDISM
     Dates: start: 2002
  8. PLAVIX [Concomitant]
     Active Substance: CLOPIDOGREL BISULFATE
  9. BRILINTA [Suspect]
     Active Substance: TICAGRELOR
     Indication: ATRIAL FIBRILLATION
     Dosage: 90.0MG UNKNOWN
     Route: 048
     Dates: start: 20160331
  10. LIPITOR [Concomitant]
     Active Substance: ATORVASTATIN CALCIUM
  11. BABY ASPIRIN [Concomitant]
     Active Substance: ASPIRIN
     Dates: start: 20160331

REACTIONS (38)
  - Gastric disorder [Unknown]
  - Granuloma [Unknown]
  - Muscle mass [Unknown]
  - Diarrhoea [Unknown]
  - Blood urea increased [Unknown]
  - Atrial fibrillation [Unknown]
  - Dry eye [Unknown]
  - Myopathy [Unknown]
  - Invasive ductal breast carcinoma [Unknown]
  - Vascular pseudoaneurysm [Unknown]
  - Pain [Unknown]
  - Joint swelling [Unknown]
  - Arthralgia [Unknown]
  - Abdominal pain upper [Unknown]
  - Pain in extremity [Unknown]
  - Product quality issue [Unknown]
  - Renal failure [Unknown]
  - Breast calcifications [Unknown]
  - Chromaturia [Unknown]
  - Gastrointestinal disorder [Unknown]
  - Skin discolouration [Unknown]
  - Chest pain [Unknown]
  - Salivary gland disorder [Unknown]
  - Breast cancer female [Unknown]
  - Haematoma [Unknown]
  - Heart rate increased [Unknown]
  - Constipation [Unknown]
  - Dental caries [Unknown]
  - Joint swelling [Unknown]
  - Medical device pain [Unknown]
  - Muscle spasms [Unknown]
  - Neuropathy peripheral [Unknown]
  - Medical device site swelling [Unknown]
  - Hepatic pain [Unknown]
  - Haemorrhage [Unknown]
  - Lymphoedema [Unknown]
  - Renal pain [Unknown]
  - Musculoskeletal pain [Unknown]

NARRATIVE: CASE EVENT DATE: 2016
